FAERS Safety Report 4556419-1 (Version None)
Quarter: 2005Q1

REPORT INFORMATION
  Report Type: 
  Country: None (occurrence: None)
  Receive Date: 20050114
  Receipt Date: 20050105
  Transmission Date: 20050727
  Serious: Yes (Hospitalization, Other)
  Sender: FDA-Public Use
  Company Number: 2005007714

PATIENT
  Age: 67 Year
  Sex: Female

DRUGS (8)
  1. NORVASC [Suspect]
     Indication: HYPERTENSION
     Dosage: 5 MG, ORAL
     Route: 048
     Dates: end: 20050104
  2. AROMASIN [Suspect]
     Indication: BREAST CANCER
     Dosage: 25 MG, ORAL
     Route: 048
     Dates: start: 20041101, end: 20050104
  3. ZOLPIDEM TARTRATE [Suspect]
     Indication: INSOMNIA
     Dosage: ORAL
     Route: 048
     Dates: end: 20050104
  4. NIZATIDINE [Concomitant]
  5. LOXOPROFEN SODIUM (LOXOPROFEN SODIUM) [Concomitant]
  6. CEFCAPENE PIVOXIL HYDROCHLORIDE (CEFCAPENE PIVOXIL HYDROCHLORIDE) [Concomitant]
  7. SERRAPEPTASE (SERRAPEPTASE) [Concomitant]
  8. CARBAZOCHROME SODIUM SULFONATE (CARBAZOCHROME SODIUM SULFONATE) [Concomitant]

REACTIONS (5)
  - ACCIDENTAL OVERDOSE [None]
  - ANOREXIA [None]
  - BREAST CANCER [None]
  - DIFFICULTY IN WALKING [None]
  - DIZZINESS [None]
